FAERS Safety Report 11658909 (Version 11)
Quarter: 2016Q2

REPORT INFORMATION
  Report Type: Spontaneous
  Country: JP (occurrence: JP)
  Receive Date: 20151026
  Receipt Date: 20160513
  Transmission Date: 20160815
  Serious: Yes (Death, Hospitalization, Other)
  Sender: FDA-Public Use
  Company Number: PHJP2015JP018517

PATIENT
  Age: 72 Year
  Sex: Male
  Weight: 44 kg

DRUGS (3)
  1. DOCETAXEL. [Concomitant]
     Active Substance: DOCETAXEL
     Indication: NEOPLASM MALIGNANT
     Dosage: 30 MG, QD
     Route: 041
     Dates: start: 20111017, end: 20130701
  2. LEUPLIN [Concomitant]
     Active Substance: LEUPROLIDE ACETATE
     Indication: PROSTATE CANCER
     Dosage: 7.5 MG, QD
     Route: 041
     Dates: start: 20101007, end: 20110707
  3. ZOMETA [Suspect]
     Active Substance: ZOLEDRONIC ACID
     Indication: METASTASES TO BONE
     Dosage: 4 MG
     Route: 041
     Dates: start: 20101104, end: 20111006

REACTIONS (13)
  - Metastases to bone [Unknown]
  - Vein rupture [Fatal]
  - Nervous system disorder [Fatal]
  - Gingival swelling [Fatal]
  - Pathological fracture [Fatal]
  - Exposed bone in jaw [Fatal]
  - Depressed level of consciousness [Fatal]
  - Osteonecrosis of jaw [Fatal]
  - General physical health deterioration [Unknown]
  - Haemorrhage [Recovered/Resolved]
  - Arterial rupture [Fatal]
  - Haematemesis [Fatal]
  - Haemorrhage [Fatal]

NARRATIVE: CASE EVENT DATE: 20120821
